FAERS Safety Report 9286960 (Version 1)
Quarter: 2013Q2

REPORT INFORMATION
  Report Type: Spontaneous
  Country: IT (occurrence: None)
  Receive Date: 20130509
  Receipt Date: 20130509
  Transmission Date: 20140414
  Serious: Yes (Other)
  Sender: FDA-Public Use
  Company Number: FK201301433

PATIENT
  Age: 11 Year
  Sex: Male

DRUGS (1)
  1. PROPOFOL [Suspect]
     Indication: INDUCTION OF ANAESTHESIA
     Dosage: 20 MG, 1 IN 1 D, INTRAVENOUS (NOT OTHERWISE SPECIFIED)
     Route: 042
     Dates: start: 20130422, end: 20130422

REACTIONS (4)
  - Rash [None]
  - Tremor [None]
  - Blood pressure systolic decreased [None]
  - Respiratory arrest [None]
